FAERS Safety Report 13251106 (Version 2)
Quarter: 2018Q1

REPORT INFORMATION
  Report Type: Spontaneous
  Country: US (occurrence: US)
  Receive Date: 20170220
  Receipt Date: 20180105
  Transmission Date: 20180508
  Serious: Yes (Life-Threatening, Other)
  Sender: FDA-Public Use
  Company Number: US-SUN PHARMACEUTICAL INDUSTRIES LTD-2017US-133862

PATIENT
  Age: 76 Year
  Sex: Female

DRUGS (2)
  1. ALLOPURINOL. [Suspect]
     Active Substance: ALLOPURINOL
     Indication: GOUTY ARTHRITIS
     Dosage: UNK
     Route: 065
     Dates: start: 201510
  2. COLCHICINE. [Concomitant]
     Active Substance: COLCHICINE
     Indication: GOUTY ARTHRITIS
     Dosage: UNK
     Route: 065
     Dates: start: 201510

REACTIONS (2)
  - Drug reaction with eosinophilia and systemic symptoms [Recovered/Resolved]
  - Renal failure [Recovered/Resolved]
